FAERS Safety Report 13473097 (Version 2)
Quarter: 2017Q2

REPORT INFORMATION
  Report Type: Spontaneous
  Country: US (occurrence: US)
  Receive Date: 20170424
  Receipt Date: 20170428
  Transmission Date: 20170830
  Serious: Yes (Death)
  Sender: FDA-Public Use
  Company Number: US-PFIZER INC-2017172325

PATIENT
  Weight: 3.86 kg

DRUGS (9)
  1. DIGOXIN. [Concomitant]
     Active Substance: DIGOXIN
     Indication: RIGHT VENTRICULAR FAILURE
     Dosage: UNK
  2. AMPICILLIN [Concomitant]
     Active Substance: AMPICILLIN
     Indication: SEPSIS
     Dosage: UNK
  3. PHENOBARBITAL. [Concomitant]
     Active Substance: PHENOBARBITAL
     Indication: PARTIAL SEIZURES
     Dosage: UNK
  4. GENTAMICIN. [Concomitant]
     Active Substance: GENTAMICIN
     Indication: SEPSIS
     Dosage: UNK
  5. FUROSEMIDE. [Concomitant]
     Active Substance: FUROSEMIDE
     Indication: TACHYPNOEA
     Dosage: UNK
  6. ALPROSTADIL. [Suspect]
     Active Substance: ALPROSTADIL
     Indication: EBSTEIN^S ANOMALY
     Dosage: UNK (0.1 UG/KG/MIN VIA THE UMBILICAL ARTERY CATHETER )
     Route: 041
  7. ALPROSTADIL. [Suspect]
     Active Substance: ALPROSTADIL
     Indication: CONGENITAL PULMONARY VALVE ATRESIA
     Dosage: UNK (0.03 UG/KG/MIN VIA THE UMBILICAL ARTERY CATHETER)
     Route: 041
  8. ALPROSTADIL. [Suspect]
     Active Substance: ALPROSTADIL
     Dosage: UNK (0.0125 UG/ KG/MIN ON THE FOURTH DAY OF INFUSION VIA THE UMBILICAL ARTERY CATHETER)
     Route: 041
  9. ALPROSTADIL. [Suspect]
     Active Substance: ALPROSTADIL
     Dosage: UNK (0.006 UG/KG/MIN BY THE SIXTH DAY VIA THE UMBILICAL ARTERY CATHETER )
     Route: 041

REACTIONS (1)
  - Angiopathy [Fatal]
